FAERS Safety Report 10886080 (Version 1)
Quarter: 2015Q1

REPORT INFORMATION
  Report Type: Spontaneous
  Country: DE (occurrence: DE)
  Receive Date: 20150304
  Receipt Date: 20150304
  Transmission Date: 20150721
  Serious: Yes (Other)
  Sender: FDA-Public Use
  Company Number: DE-BAUSCH-BL-2015-004088

PATIENT
  Age: 49 Year
  Sex: Male

DRUGS (2)
  1. VERTEPORFIN [Suspect]
     Active Substance: VERTEPORFIN
     Indication: EYE HAEMANGIOMA
     Dosage: 6 MG/M2, OVER 10 MINS
     Route: 065
  2. KENALOG [Suspect]
     Active Substance: TRIAMCINOLONE ACETONIDE
     Indication: EYE HAEMANGIOMA
     Route: 031

REACTIONS (5)
  - Tumour flare [Unknown]
  - Retinal detachment [Unknown]
  - Drug effect decreased [None]
  - Condition aggravated [Unknown]
  - Intentional product use issue [Unknown]
